FAERS Safety Report 4584598-9 (Version None)
Quarter: 2005Q1

REPORT INFORMATION
  Report Type: 
  Country: None (occurrence: None)
  Receive Date: 20050216
  Receipt Date: 20041104
  Transmission Date: 20050727
  Serious: Yes (Hospitalization)
  Sender: FDA-Public Use
  Company Number: US-MERCK-0411USA00689

PATIENT
  Sex: Female

DRUGS (3)
  1. VIOXX [Suspect]
     Route: 048
  2. MOBIC [Suspect]
     Route: 048
  3. COUMADIN [Concomitant]
     Route: 065

REACTIONS (4)
  - BREAST DISORDER [None]
  - HAEMORRHAGE [None]
  - MUSCULOSKELETAL STIFFNESS [None]
  - PROTHROMBIN LEVEL INCREASED [None]
